FAERS Safety Report 11828319 (Version 3)
Quarter: 2016Q3

REPORT INFORMATION
  Report Type: Report from Study
  Country: JP (occurrence: JP)
  Receive Date: 20151211
  Receipt Date: 20160801
  Transmission Date: 20161109
  Serious: Yes (Death, Other)
  Sender: FDA-Public Use
  Company Number: JP-EISAI MEDICAL RESEARCH-EC-2015-012739

PATIENT
  Age: 84 Year
  Sex: Female
  Weight: 30 kg

DRUGS (9)
  1. MUCOSTA [Concomitant]
     Active Substance: REBAMIPIDE
  2. FULPEN [Concomitant]
  3. BROTIZOLAM [Concomitant]
     Active Substance: BROTIZOLAM
  4. DIOVAN [Concomitant]
     Active Substance: VALSARTAN
  5. LEVOTHYROXINE SODIUM HYDRATE [Concomitant]
     Active Substance: LEVOTHYROXINE SODIUM
  6. ONEALFA [Concomitant]
     Active Substance: ALFACALCIDOL
  7. TOCOPHEROL NICOTINATE [Concomitant]
     Active Substance: TOCOPHERYL NICOTINATE, D-.ALPHA.
  8. LENVIMA [Suspect]
     Active Substance: LENVATINIB
     Indication: PAPILLARY THYROID CANCER
     Route: 048
     Dates: start: 20150902, end: 20150904
  9. ADALAT [Concomitant]
     Active Substance: NIFEDIPINE

REACTIONS (2)
  - Haemoptysis [Recovering/Resolving]
  - Malignant neoplasm progression [Fatal]

NARRATIVE: CASE EVENT DATE: 20150904
